FAERS Safety Report 15762752 (Version 3)
Quarter: 2023Q1

REPORT INFORMATION
  Report Type: Spontaneous
  Country: HU (occurrence: HU)
  Receive Date: 20181226
  Receipt Date: 20230222
  Transmission Date: 20230418
  Serious: Yes (Other)
  Sender: FDA-Public Use
  Company Number: PHHY2018HU175414

PATIENT
  Age: 24 Year
  Sex: Male

DRUGS (6)
  1. AMOXICILLIN\CLAVULANATE POTASSIUM [Suspect]
     Active Substance: AMOXICILLIN\CLAVULANATE POTASSIUM
     Indication: Antibiotic therapy
     Dosage: UNK
     Route: 065
  2. AMOXICILLIN\CLAVULANATE POTASSIUM [Suspect]
     Active Substance: AMOXICILLIN\CLAVULANATE POTASSIUM
     Indication: Infectious mononucleosis
  3. AMOXICILLIN\CLAVULANATE POTASSIUM [Suspect]
     Active Substance: AMOXICILLIN\CLAVULANATE POTASSIUM
     Indication: Headache
  4. AMOXICILLIN\CLAVULANATE POTASSIUM [Suspect]
     Active Substance: AMOXICILLIN\CLAVULANATE POTASSIUM
     Indication: Body temperature increased
  5. AMOXICILLIN\CLAVULANATE POTASSIUM [Suspect]
     Active Substance: AMOXICILLIN\CLAVULANATE POTASSIUM
     Indication: Oropharyngeal pain
  6. AMOXICILLIN\CLAVULANATE POTASSIUM [Suspect]
     Active Substance: AMOXICILLIN\CLAVULANATE POTASSIUM
     Indication: Swelling of eyelid

REACTIONS (17)
  - Rash [Recovered/Resolved]
  - Hepatic function abnormal [Recovered/Resolved]
  - Throat lesion [Recovered/Resolved]
  - Hepatic enzyme increased [Recovered/Resolved]
  - Infectious mononucleosis [Recovered/Resolved]
  - Cytomegalovirus test positive [Recovered/Resolved]
  - Tachycardia [Unknown]
  - Product use in unapproved indication [Unknown]
  - Rash [Recovered/Resolved]
  - Skin lesion [Unknown]
  - Epstein-Barr virus infection [Recovered/Resolved]
  - Mononucleosis syndrome [Recovered/Resolved]
  - Heart sounds abnormal [Recovered/Resolved]
  - Lymphocytosis [Recovered/Resolved]
  - Aphthous ulcer [Recovered/Resolved]
  - Pruritus [Recovered/Resolved]
  - Leukocytosis [Recovered/Resolved]
